FAERS Safety Report 9686386 (Version 1)
Quarter: 2013Q4

REPORT INFORMATION
  Report Type: Report from Study
  Country: US (occurrence: US)
  Receive Date: 20131113
  Receipt Date: 20131113
  Transmission Date: 20140711
  Serious: Yes (Hospitalization)
  Sender: FDA-Public Use
  Company Number: US-ABBVIE-13P-163-1166431-00

PATIENT
  Age: 65 Year
  Sex: Male

DRUGS (3)
  1. HUMIRA [Suspect]
     Indication: PSORIATIC ARTHROPATHY
     Route: 058
     Dates: start: 2008
  2. HUMIRA [Suspect]
     Indication: RHEUMATOID ARTHRITIS
  3. REMICADE [Concomitant]
     Indication: PRODUCT USED FOR UNKNOWN INDICATION

REACTIONS (5)
  - Atrial flutter [Unknown]
  - Atrial flutter [Unknown]
  - Atrial fibrillation [Unknown]
  - Atrial fibrillation [Unknown]
  - Tooth loss [Unknown]
